FAERS Safety Report 12391174 (Version 1)
Quarter: 2016Q2

REPORT INFORMATION
  Report Type: Spontaneous
  Country: GB (occurrence: GB)
  Receive Date: 20160520
  Receipt Date: 20160520
  Transmission Date: 20160815
  Serious: Yes (Hospitalization, Other)
  Sender: FDA-Public Use
  Company Number: GB-TEVA-659905ACC

PATIENT
  Age: 84 Year
  Sex: Male
  Weight: 76 kg

DRUGS (15)
  1. PARACETAMOL [Concomitant]
     Active Substance: ACETAMINOPHEN
  2. RAMIPRIL. [Concomitant]
     Active Substance: RAMIPRIL
  3. DIGOXIN. [Concomitant]
     Active Substance: DIGOXIN
  4. ONDANSETRON [Concomitant]
     Active Substance: ONDANSETRON
  5. SIMVASTATIN. [Concomitant]
     Active Substance: SIMVASTATIN
  6. CODEINE [Concomitant]
     Active Substance: CODEINE
  7. INDOMETHACIN. [Concomitant]
     Active Substance: INDOMETHACIN
     Dosage: 100 MILLIGRAM DAILY;
     Dates: start: 20160221
  8. NAPROXEN. [Concomitant]
     Active Substance: NAPROXEN
     Dosage: 1000 MILLIGRAM DAILY; PRESUMED PATIENT TOOK 2 DOSES PRIOR TO ADMISSION
     Dates: start: 20160330
  9. WARFARIN [Suspect]
     Active Substance: WARFARIN
     Indication: ATRIAL FIBRILLATION
     Dosage: AS PER INTERNATIONAL NORMALISED RATIO (RANGE 2-3 FOR ATRIAL FIBRILLATION)
     Route: 048
     Dates: start: 20150223
  10. ORAMORPH [Concomitant]
     Active Substance: MORPHINE SULFATE
  11. HYDROXOCOBALAMIN [Concomitant]
     Active Substance: HYDROXOCOBALAMIN
  12. TRAMADOL. [Concomitant]
     Active Substance: TRAMADOL
  13. VIAZEM XL [Concomitant]
     Active Substance: DILTIAZEM HYDROCHLORIDE
  14. FUROSEMIDE. [Concomitant]
     Active Substance: FUROSEMIDE
  15. SIRDUPLA [Concomitant]
     Dosage: FLUTICASONE 250MCG/DOSE/SALMETEROL 25MCG/DOSE
     Route: 055

REACTIONS (7)
  - Diarrhoea [Unknown]
  - Joint swelling [Unknown]
  - Malaise [Unknown]
  - Arthralgia [Unknown]
  - Haemarthrosis [Not Recovered/Not Resolved]
  - Vomiting [Unknown]
  - Nausea [Unknown]

NARRATIVE: CASE EVENT DATE: 201604
